FAERS Safety Report 11355151 (Version 2)
Quarter: 2015Q3

REPORT INFORMATION
  Report Type: Spontaneous
  Country: US (occurrence: US)
  Receive Date: 20150807
  Receipt Date: 20150916
  Transmission Date: 20151125
  Serious: Yes (Other)
  Sender: FDA-Public Use
  Company Number: US-JNJFOC-20150707517

PATIENT
  Sex: Female
  Weight: 47.17 kg

DRUGS (6)
  1. RISPERDAL [Suspect]
     Active Substance: RISPERIDONE
     Indication: BIPOLAR I DISORDER
     Dosage: 100 OR 150 MG DAILY
     Route: 048
     Dates: start: 2009, end: 2009
  2. ZOLOFT [Suspect]
     Active Substance: SERTRALINE HYDROCHLORIDE
     Indication: PRODUCT USED FOR UNKNOWN INDICATION
     Route: 065
  3. RISPERDAL [Suspect]
     Active Substance: RISPERIDONE
     Indication: BIPOLAR I DISORDER
     Dosage: LOWDOSE DAILY
     Route: 048
     Dates: start: 2015
  4. RISPERDAL [Suspect]
     Active Substance: RISPERIDONE
     Indication: BIPOLAR I DISORDER
     Route: 048
     Dates: start: 2004
  5. RISPERDAL [Suspect]
     Active Substance: RISPERIDONE
     Indication: BIPOLAR I DISORDER
     Route: 048
     Dates: start: 20080724, end: 2008
  6. WELLBUTRIN SR [Suspect]
     Active Substance: BUPROPION HYDROCHLORIDE
     Indication: BIPOLAR DISORDER
     Route: 065
     Dates: start: 2009

REACTIONS (9)
  - Feeling drunk [Recovered/Resolved]
  - Blood prolactin increased [Unknown]
  - Breast mass [Recovered/Resolved]
  - Feeling abnormal [Recovered/Resolved]
  - Galactorrhoea [Not Recovered/Not Resolved]
  - Breast discomfort [Not Recovered/Not Resolved]
  - Drug dose omission [Unknown]
  - Amenorrhoea [Not Recovered/Not Resolved]
  - Neoplasm malignant [Unknown]

NARRATIVE: CASE EVENT DATE: 2008
